FAERS Safety Report 12061259 (Version 1)
Quarter: 2016Q1

REPORT INFORMATION
  Report Type: Spontaneous
  Country: US (occurrence: US)
  Receive Date: 20160210
  Receipt Date: 20160210
  Transmission Date: 20160526
  Serious: No
  Sender: FDA-Public Use
  Company Number: US-CELGENEUS-USA-2016021909

PATIENT
  Age: 58 Year
  Sex: Male

DRUGS (1)
  1. OTEZLA [Suspect]
     Active Substance: APREMILAST
     Indication: PRODUCT USED FOR UNKNOWN INDICATION
     Dosage: STARTER PACK IN DAY 19
     Route: 048

REACTIONS (6)
  - Respiratory tract infection [Unknown]
  - Headache [Unknown]
  - Diarrhoea [Unknown]
  - Dysgeusia [Unknown]
  - Dyspepsia [Unknown]
  - Nausea [Unknown]
